FAERS Safety Report 7264143-X (Version None)
Quarter: 2011Q1

REPORT INFORMATION
  Report Type: 
  Country: None (occurrence: None)
  Receive Date: 20110131
  Receipt Date: 20110119
  Transmission Date: 20110831
  Serious: Yes (Death)
  Sender: FDA-Public Use
  Company Number: US-BIOGENIDEC-2010BI041329

PATIENT
  Age: 54 Year
  Sex: Female
  Weight: 78 kg

DRUGS (1)
  1. TYSABRI [Suspect]
     Indication: MULTIPLE SCLEROSIS
     Route: 042
     Dates: start: 20100513, end: 20100923

REACTIONS (3)
  - DEPRESSION [None]
  - ARTHRALGIA [None]
  - SUDDEN CARDIAC DEATH [None]
